FAERS Safety Report 8310046-9 (Version None)
Quarter: 2012Q2

REPORT INFORMATION
  Report Type: 
  Country: None (occurrence: None)
  Receive Date: 20120423
  Receipt Date: 20120410
  Transmission Date: 20120825
  Serious: Yes (Disabling)
  Sender: FDA-Public Use
  Company Number: 2012GB0091

PATIENT
  Age: 66 Year
  Sex: Male

DRUGS (5)
  1. SIMVASTATIN [Concomitant]
  2. ALLOPURINOL [Concomitant]
  3. METHOTREXATE [Concomitant]
  4. ANAKINRA (ANAKINRA) [Suspect]
     Indication: RHEUMATOID ARTHRITIS
     Dosage: 100 MG (100 MG, 1 IN 1 D) SUBCUTANEOUS
     Route: 058
     Dates: start: 20020418
  5. FOLIC ACID [Concomitant]

REACTIONS (2)
  - PARKINSON'S DISEASE [None]
  - DYSTONIA [None]
